FAERS Safety Report 8658932 (Version 4)
Quarter: 2012Q4

REPORT INFORMATION
  Report Type: Report from Study
  Country: US (occurrence: US)
  Receive Date: 20120710
  Receipt Date: 20120830
  Transmission Date: 20130627
  Serious: Yes (Hospitalization)
  Sender: FDA-Public Use
  Company Number: US-MYLANLABS-2012S1013404

PATIENT
  Age: 65 Year
  Sex: Male

DRUGS (10)
  1. SAXAGLIPTIN [Suspect]
     Indication: TYPE 2 DIABETES MELLITUS
     Dates: start: 20101211, end: 20110402
  2. SAXAGLIPTIN [Suspect]
     Indication: TYPE 2 DIABETES MELLITUS
     Dates: start: 20120601
  3. INSULIN GLARGINE [Suspect]
     Indication: TYPE 2 DIABETES MELLITUS
  4. INSULIN HUMAN [Suspect]
     Indication: TYPE 2 DIABETES MELLITUS
  5. PLACEBO [Suspect]
     Indication: TYPE 2 DIABETES MELLITUS
     Dates: start: 20101211, end: 20110402
  6. PLACEBO [Suspect]
     Indication: TYPE 2 DIABETES MELLITUS
     Dates: start: 20120601
  7. BACLOFEN TABLETS USP [Suspect]
  8. LISINOPRIL [Concomitant]
     Dates: end: 20110408
  9. HYDROCHLOROTHIAZIDE [Concomitant]
     Dates: start: 20111212, end: 20111214
  10. ASPIRIN [Concomitant]

REACTIONS (4)
  - Encephalopathy [Recovered/Resolved]
  - Renal failure acute [Recovered/Resolved]
  - Influenza [Recovered/Resolved]
  - Angina pectoris [Recovered/Resolved]
